FAERS Safety Report 5820494-4 (Version None)
Quarter: 2008Q3

REPORT INFORMATION
  Report Type: 
  Country: None (occurrence: None)
  Receive Date: 20080724
  Receipt Date: 20070814
  Transmission Date: 20090109
  Serious: No
  Sender: FDA-Public Use
  Company Number: A0670191A

PATIENT
  Age: 48 Year
  Sex: Female

DRUGS (14)
  1. AVANDIA [Suspect]
     Dosage: 4MG TWICE PER DAY
     Route: 048
     Dates: start: 20040101
  2. PROZAC [Concomitant]
  3. XANAX [Concomitant]
  4. GLUCOPHAGE [Concomitant]
  5. ZESTORETIC [Concomitant]
  6. SOMA [Concomitant]
  7. HYDROXYZINE [Concomitant]
  8. LUNESTA [Concomitant]
  9. CRESTOR [Concomitant]
  10. PAIN MEDICATION [Concomitant]
  11. ANAPROX [Concomitant]
  12. PREDNISONE TAB [Concomitant]
  13. CORTISONE ACETATE INJ [Concomitant]
  14. MEDROL [Concomitant]

REACTIONS (1)
  - HYPOAESTHESIA [None]
